FAERS Safety Report 7982589-9 (Version None)
Quarter: 2011Q4

REPORT INFORMATION
  Report Type: 
  Country: None (occurrence: None)
  Receive Date: 20111215
  Receipt Date: 20111208
  Transmission Date: 20120403
  Serious: Yes (Death, Other)
  Sender: FDA-Public Use
  Company Number: US-GLAXOSMITHKLINE-A0954216A

PATIENT
  Age: 47 Year
  Sex: Female

DRUGS (5)
  1. CORTICOSTEROIDS [Concomitant]
  2. ROMIPLOSTIM [Concomitant]
     Dates: start: 20090304, end: 20090416
  3. RITUXIMAB [Concomitant]
     Dates: start: 20080212, end: 20080219
  4. PROMACTA [Suspect]
     Indication: AUTOIMMUNE THROMBOCYTOPENIA
     Dosage: 50MG PER DAY
     Route: 048
     Dates: start: 20090615
  5. IMMUNE GLOBULIN INTRAVENOUS (HUMAN) [Concomitant]
     Dates: start: 20080202, end: 20090225

REACTIONS (1)
  - MYOCARDIAL INFARCTION [None]
